FAERS Safety Report 6412557-X (Version None)
Quarter: 2009Q4

REPORT INFORMATION
  Report Type: 
  Country: None (occurrence: None)
  Receive Date: 20091023
  Receipt Date: 20091015
  Transmission Date: 20100525
  Serious: Yes (Hospitalization, Other)
  Sender: FDA-Public Use
  Company Number: US-ELI_LILLY_AND_COMPANY-US200906006006

PATIENT
  Sex: Female
  Weight: 67.574 kg

DRUGS (12)
  1. TADALAFIL [Suspect]
     Indication: PULMONARY ARTERIAL HYPERTENSION
     Dosage: UNK, DAILY (1/D)
     Route: 048
     Dates: start: 20070216, end: 20080211
  2. TADALAFIL [Suspect]
     Dosage: 40 MG, DAILY (1/D)
     Route: 048
     Dates: start: 20080212, end: 20090903
  3. TADALAFIL [Suspect]
     Dosage: 40 MG, DAILY (1/D)
     Route: 048
     Dates: start: 20090908
  4. REMODULIN [Concomitant]
     Indication: PULMONARY ARTERIAL HYPERTENSION
     Dosage: 20 MG/KG, UNK
     Dates: start: 20090119
  5. WARFARIN SODIUM [Concomitant]
     Indication: PULMONARY ARTERIAL HYPERTENSION
     Dosage: 2 MG, UNK
     Dates: start: 20090121
  6. FERROUS SULFATE TAB [Concomitant]
     Indication: ANAEMIA
     Dosage: 325 MG, 3/D
     Dates: start: 20080214
  7. LEVOTHYROXINE SODIUM [Concomitant]
     Indication: HYPOTHYROIDISM
     Dosage: 100 UG, DAILY (1/D)
     Dates: start: 20050101
  8. SENNA [Concomitant]
     Indication: CONSTIPATION
     Dosage: UNK, AS NEEDED
     Dates: start: 20060701
  9. NEXIUM [Concomitant]
     Indication: REFLUX OESOPHAGITIS
     Dosage: UNK, UNK
     Dates: start: 20070601
  10. KLONOPIN [Concomitant]
     Indication: ANXIETY
     Dosage: 0.5 MG, DAILY (1/D)
     Dates: start: 20070601
  11. LUNESTA [Concomitant]
     Indication: INSOMNIA
     Dosage: 2 MG, AS NEEDED
     Dates: start: 20070212
  12. PERCOCET [Concomitant]
     Indication: PAIN IN EXTREMITY

REACTIONS (1)
  - OESOPHAGEAL ACHALASIA [None]
